FAERS Safety Report 22323839 (Version 1)
Quarter: 2023Q2

REPORT INFORMATION
  Report Type: Spontaneous
  Country: HU (occurrence: HU)
  Receive Date: 20230516
  Receipt Date: 20230516
  Transmission Date: 20230721
  Serious: Yes (Life-Threatening)
  Sender: FDA-Public Use
  Company Number: None

PATIENT

DRUGS (4)
  1. STANDACILLIN [Suspect]
     Active Substance: AMPICILLIN
     Indication: Foetal exposure during pregnancy
     Dosage: UNK (MATERNAL DOSE: UNK, TOTAL)
     Route: 064
     Dates: start: 20230425, end: 20230425
  2. SOLU-MEDROL [Concomitant]
     Active Substance: METHYLPREDNISOLONE SODIUM SUCCINATE
     Indication: Foetal exposure during pregnancy
     Dosage: 1 DOSAGE FORM
     Route: 064
     Dates: start: 20230425, end: 20230425
  3. CHLOROPYRAMINE HYDROCHLORIDE [Concomitant]
     Active Substance: CHLOROPYRAMINE HYDROCHLORIDE
     Indication: Foetal exposure during pregnancy
     Dosage: 1 DOSAGE FORM
     Route: 064
  4. TONOGEN [Concomitant]
     Indication: Foetal exposure during pregnancy
     Dosage: 1 DOSAGE FORM
     Route: 064
     Dates: start: 20230425, end: 20230425

REACTIONS (1)
  - Bradycardia foetal [Unknown]

NARRATIVE: CASE EVENT DATE: 20230425
